FAERS Safety Report 24573596 (Version 1)
Quarter: 2024Q4

REPORT INFORMATION
  Report Type: Other
  Country: CN (occurrence: CN)
  Receive Date: 20241103
  Receipt Date: 20241103
  Transmission Date: 20250114
  Serious: Yes (Hospitalization, Other)
  Sender: DEXCEL
  Company Number: CN-DEXPHARM-2024-4303

PATIENT
  Age: 74 Year
  Sex: Female

DRUGS (5)
  1. POTASSIUM CITRATE [Concomitant]
     Active Substance: POTASSIUM CITRATE
  2. CALCIUM GLUCONATE [Concomitant]
     Active Substance: CALCIUM GLUCONATE
  3. SPIRONOLACTONE [Concomitant]
     Active Substance: SPIRONOLACTONE
  4. OMEPRAZOLE [Suspect]
     Active Substance: OMEPRAZOLE
     Indication: Abdominal discomfort
     Dosage: 20 MG DAILY FOR NEARLY 10 YEARS
  5. MAGNESIUM [Concomitant]
     Active Substance: MAGNESIUM

REACTIONS (7)
  - Hypoparathyroidism [Recovered/Resolved]
  - Hypocalcaemia [Recovered/Resolved]
  - Delirium [Recovered/Resolved]
  - Hypokalaemia [Recovered/Resolved]
  - Hypomagnesaemia [Recovered/Resolved]
  - Nystagmus [Recovered/Resolved]
  - Cerebellar syndrome [Recovered/Resolved]
